FAERS Safety Report 8157869 (Version 7)
Quarter: 2013Q1

REPORT INFORMATION
  Report Type: Spontaneous
  Country: US (occurrence: US)
  Receive Date: 20110927
  Receipt Date: 20130308
  Transmission Date: 20140127
  Serious: Yes (Hospitalization)
  Sender: FDA-Public Use
  Company Number: US-ASTRAZENECA-2011SE04366

PATIENT
  Age: 60 Year
  Sex: Female
  Weight: 68 kg

DRUGS (29)
  1. SEROQUEL [Suspect]
     Indication: ANXIETY
     Route: 048
  2. SEROQUEL [Suspect]
     Indication: DEPRESSION
     Route: 048
  3. SEROQUEL [Suspect]
     Indication: SLEEP DISORDER
     Route: 048
  4. SEROQUEL [Suspect]
     Indication: ANXIETY
     Dosage: 300 MG DAILY AND 50 MG IF NECESSARY
     Route: 048
  5. SEROQUEL [Suspect]
     Indication: DEPRESSION
     Dosage: 300 MG DAILY AND 50 MG IF NECESSARY
     Route: 048
  6. SEROQUEL [Suspect]
     Indication: SLEEP DISORDER
     Dosage: 300 MG DAILY AND 50 MG IF NECESSARY
     Route: 048
  7. SEROQUEL [Suspect]
     Indication: ANXIETY
     Dosage: 300 MG AND 100 MG AT NIGHT
     Route: 048
  8. SEROQUEL [Suspect]
     Indication: DEPRESSION
     Dosage: 300 MG AND 100 MG AT NIGHT
     Route: 048
  9. SEROQUEL [Suspect]
     Indication: SLEEP DISORDER
     Dosage: 300 MG AND 100 MG AT NIGHT
     Route: 048
  10. SEROQUEL [Suspect]
     Indication: ANXIETY
     Dosage: 100 MG TO 300 MG
     Route: 048
  11. SEROQUEL [Suspect]
     Indication: DEPRESSION
     Dosage: 100 MG TO 300 MG
     Route: 048
  12. SEROQUEL [Suspect]
     Indication: SLEEP DISORDER
     Dosage: 100 MG TO 300 MG
     Route: 048
  13. SEROQUEL [Suspect]
     Indication: ANXIETY
     Route: 048
  14. SEROQUEL [Suspect]
     Indication: DEPRESSION
     Route: 048
  15. SEROQUEL [Suspect]
     Indication: SLEEP DISORDER
     Route: 048
  16. SEROQUEL [Suspect]
     Indication: ANXIETY
     Route: 048
  17. SEROQUEL [Suspect]
     Indication: DEPRESSION
     Route: 048
  18. SEROQUEL [Suspect]
     Indication: SLEEP DISORDER
     Route: 048
  19. SEROQUEL [Suspect]
     Indication: ANXIETY
     Route: 048
  20. SEROQUEL [Suspect]
     Indication: DEPRESSION
     Route: 048
  21. SEROQUEL [Suspect]
     Indication: SLEEP DISORDER
     Route: 048
  22. SEROQUEL [Suspect]
     Indication: ANXIETY
     Route: 048
  23. SEROQUEL [Suspect]
     Indication: DEPRESSION
     Route: 048
  24. SEROQUEL [Suspect]
     Indication: SLEEP DISORDER
     Route: 048
  25. CYMBALTA [Concomitant]
     Indication: DEPRESSION
  26. WELLBUTRIN [Concomitant]
     Indication: DEPRESSION
  27. CLONAPIN [Concomitant]
     Indication: ANXIETY
  28. CLONAPIN [Concomitant]
     Indication: STRESS
  29. AMBIEN [Concomitant]
     Indication: SLEEP DISORDER

REACTIONS (26)
  - Panic attack [Unknown]
  - Convulsion [Unknown]
  - Drug dose omission [Unknown]
  - Self-injurious ideation [Unknown]
  - Speech disorder [Unknown]
  - Laryngitis [Unknown]
  - Pneumonia [Unknown]
  - Mental disorder [Unknown]
  - Incoherent [Unknown]
  - Malaise [Unknown]
  - Abdominal pain upper [Unknown]
  - Depressed mood [Unknown]
  - Anxiety [Unknown]
  - Activities of daily living impaired [Unknown]
  - Discomfort [Unknown]
  - Back pain [Unknown]
  - Back disorder [Unknown]
  - Nasopharyngitis [Unknown]
  - Feeling abnormal [Unknown]
  - Anaemia [Unknown]
  - Multiple allergies [Unknown]
  - Confusional state [Unknown]
  - Influenza [Recovering/Resolving]
  - Dizziness [Unknown]
  - Intentional drug misuse [Unknown]
  - Off label use [Unknown]
